FAERS Safety Report 7064662-5 (Version None)
Quarter: 2010Q4

REPORT INFORMATION
  Report Type: 
  Country: None (occurrence: None)
  Receive Date: 20101025
  Receipt Date: 20101025
  Transmission Date: 20110411
  Serious: Yes (Disabling)
  Sender: FDA-Public Use
  Company Number: None

PATIENT
  Age: 42 Year
  Sex: Female
  Weight: 57.1532 kg

DRUGS (4)
  1. AVONEX [Suspect]
     Indication: MULTIPLE SCLEROSIS
     Dosage: DAILY IM
     Route: 030
     Dates: start: 20060430, end: 20100112
  2. CITALOPRAM HYDROBROMIDE [Concomitant]
  3. ZOPICLONE [Concomitant]
  4. DOCUSATE [Concomitant]

REACTIONS (4)
  - DECREASED APPETITE [None]
  - HYPOGEUSIA [None]
  - HYPOSMIA [None]
  - WEIGHT DECREASED [None]
